FAERS Safety Report 5372051-4 (Version None)
Quarter: 2007Q2

REPORT INFORMATION
  Report Type: 
  Country: None (occurrence: None)
  Receive Date: 20070625
  Receipt Date: 20070612
  Transmission Date: 20071010
  Serious: Yes (Death)
  Sender: FDA-Public Use
  Company Number: 16816

PATIENT
  Age: 62 Year
  Sex: Male

DRUGS (2)
  1. METHOTREXATE [Suspect]
     Indication: RHEUMATOID ARTHRITIS
     Dosage: 20 MG FREQ
  2. MABTHERA. MFR: NOT SPECIFIED [Suspect]
     Indication: RHEUMATOID ARTHRITIS
     Dates: start: 20060701

REACTIONS (2)
  - CARDIAC FAILURE [None]
  - PNEUMONITIS [None]
